FAERS Safety Report 18866532 (Version 6)
Quarter: 2021Q3

REPORT INFORMATION
  Report Type: Report from Study
  Country: US (occurrence: US)
  Receive Date: 20210209
  Receipt Date: 20210819
  Transmission Date: 20211014
  Serious: No
  Sender: FDA-Public Use
  Company Number: NVSC2021US023056

PATIENT
  Age: 57 Year
  Sex: Female

DRUGS (2)
  1. COSENTYX [Suspect]
     Active Substance: SECUKINUMAB
     Indication: PSORIASIS
     Dosage: UNK
     Route: 065
  2. COSENTYX [Suspect]
     Active Substance: SECUKINUMAB
     Dosage: 300 MG Q WEEK FOR FIVE WEEKS AND THEN Q FOUR WEEKS
     Route: 058
     Dates: start: 20210112

REACTIONS (13)
  - Onychomadesis [Unknown]
  - Hypersensitivity [Unknown]
  - Inflammation [Unknown]
  - Anxiety [Unknown]
  - Dry mouth [Unknown]
  - Pustule [Unknown]
  - Feeling abnormal [Unknown]
  - Alopecia [Unknown]
  - Fatigue [Unknown]
  - Arthralgia [Unknown]
  - Injection site pain [Unknown]
  - Nasal congestion [Unknown]
  - Psoriasis [Unknown]

NARRATIVE: CASE EVENT DATE: 20210614
